FAERS Safety Report 17683777 (Version 1)
Quarter: 2020Q2

REPORT INFORMATION
  Report Type: Spontaneous
  Country: RU (occurrence: RU)
  Receive Date: 20200420
  Receipt Date: 20200420
  Transmission Date: 20200714
  Serious: Yes (Hospitalization, Other)
  Sender: FDA-Public Use
  Company Number: NVSC2020RU104518

PATIENT
  Age: 58 Year

DRUGS (4)
  1. EXJADE [Suspect]
     Active Substance: DEFERASIROX
     Indication: SERUM FERRITIN INCREASED
     Dosage: UNK
     Route: 065
  2. CYTARABINE. [Suspect]
     Active Substance: CYTARABINE
     Indication: CHRONIC MYELOMONOCYTIC LEUKAEMIA
     Dosage: UNK (SMALL DOSE)
     Route: 065
     Dates: start: 201806
  3. VIDAZA [Concomitant]
     Active Substance: AZACITIDINE
     Indication: PRODUCT USED FOR UNKNOWN INDICATION
     Dosage: 75 MG/M2 (SEVEN COURSES)
     Route: 058
     Dates: start: 201807, end: 201902
  4. INTERFERAL [Concomitant]
     Indication: MYELOPROLIFERATIVE NEOPLASM
     Dosage: 3000000 IU, Q3W
     Route: 058
     Dates: start: 201801, end: 201802

REACTIONS (10)
  - Pruritus [Unknown]
  - Malaise [Unknown]
  - Blood test abnormal [Unknown]
  - Spontaneous haematoma [Unknown]
  - Anaemia [Unknown]
  - Primary myelofibrosis [Unknown]
  - Weight decreased [Unknown]
  - Serum ferritin increased [Recovering/Resolving]
  - Chronic myelomonocytic leukaemia [Unknown]
  - Asthenia [Unknown]

NARRATIVE: CASE EVENT DATE: 201805
